FAERS Safety Report 12735598 (Version 1)
Quarter: 2016Q3

REPORT INFORMATION
  Report Type: Spontaneous
  Country: US (occurrence: US)
  Receive Date: 20160912
  Receipt Date: 20160912
  Transmission Date: 20161109
  Serious: No
  Sender: FDA-Public Use
  Company Number: US-TEVA-681351USA

PATIENT
  Sex: Female

DRUGS (1)
  1. COPAXONE [Suspect]
     Active Substance: GLATIRAMER ACETATE
     Dosage: UNKNOWN FORM OF STRENGTH
     Dates: start: 201511

REACTIONS (8)
  - Gait disturbance [Unknown]
  - Asthenia [Unknown]
  - Contusion [Unknown]
  - Nuclear magnetic resonance imaging abnormal [Unknown]
  - Arthralgia [Unknown]
  - Abdominal distension [Unknown]
  - Cholelithiasis [Unknown]
  - Drug ineffective [Unknown]
